FAERS Safety Report 23078524 (Version 1)
Quarter: 2023Q4

REPORT INFORMATION
  Report Type: Spontaneous
  Country: US (occurrence: None)
  Receive Date: 20231016
  Receipt Date: 20231016
  Transmission Date: 20240110
  Serious: Yes (Other)
  Sender: FDA-Public Use
  Company Number: None

PATIENT
  Age: 75 Year
  Sex: Female

DRUGS (11)
  1. BOTOX [Suspect]
     Active Substance: ONABOTULINUMTOXINA
     Indication: Torticollis
     Dosage: OTHER QUANTITY : 100 UNIT;?OTHER FREQUENCY : EVERY 3 MONTHS;?
     Route: 030
     Dates: start: 20220602
  2. BOTOX [Suspect]
     Active Substance: ONABOTULINUMTOXINA
     Dosage: OTHER QUANTITY : 300 UNITS;?OTHER FREQUENCY : EVERY 3 MONTHS;?
     Route: 030
  3. ATORVASTATIN [Concomitant]
  4. CARBIDOPA\LEVODOPA [Concomitant]
     Active Substance: CARBIDOPA\LEVODOPA
  5. LEVOTHYROXIN [Concomitant]
  6. LISINOPRIL [Concomitant]
  7. METRONIDAZOLE [Concomitant]
     Active Substance: METRONIDAZOLE
  8. MULTIVITAMIN [Concomitant]
  9. PRESERVISION CHW AREDS 2 [Concomitant]
  10. SIMVASTATIN [Concomitant]
  11. VITAMIN D3 [Concomitant]
     Active Substance: CHOLECALCIFEROL

REACTIONS (2)
  - Fall [None]
  - Upper limb fracture [None]

NARRATIVE: CASE EVENT DATE: 20231009
